FAERS Safety Report 16566275 (Version 1)
Quarter: 2019Q3

REPORT INFORMATION
  Report Type: Spontaneous
  Country: AT (occurrence: AT)
  Receive Date: 20190712
  Receipt Date: 20190712
  Transmission Date: 20191004
  Serious: Yes (Hospitalization)
  Sender: FDA-Public Use
  Company Number: AT-ASTRAZENECA-2019SE96998

PATIENT
  Age: 49 Year
  Sex: Male

DRUGS (14)
  1. DEPAKINE CR [Suspect]
     Active Substance: VALPROATE SODIUM
     Dosage: 1800 MG, DOSIS TAPERING
     Route: 065
     Dates: start: 20190109, end: 20190211
  2. KETANEST S [Suspect]
     Active Substance: ESKETAMINE
     Dosage: 25-75 MG/INFUSION, ONCE A WEEK
     Route: 065
     Dates: start: 20190110, end: 20190220
  3. SERTRALINE [Suspect]
     Active Substance: SERTRALINE HYDROCHLORIDE
     Dosage: 150.0MG UNKNOWN
     Route: 048
     Dates: start: 20190208, end: 20190306
  4. ENALAPRIL [Concomitant]
     Active Substance: ENALAPRIL
     Dosage: 20.0MG UNKNOWN
     Route: 048
     Dates: start: 20190223
  5. SEROQUEL XR [Suspect]
     Active Substance: QUETIAPINE FUMARATE
     Dosage: 50-300 MG
     Route: 048
     Dates: start: 20190207, end: 20190217
  6. LAMICTAL [Suspect]
     Active Substance: LAMOTRIGINE
     Dosage: 200 MG
     Route: 065
     Dates: start: 20190112, end: 20190527
  7. SERTRALINE [Suspect]
     Active Substance: SERTRALINE HYDROCHLORIDE
     Dosage: 200.0MG UNKNOWN
     Route: 048
     Dates: start: 20190307
  8. CO-ENALAPRIL1A PHARMA [Suspect]
     Active Substance: ENALAPRIL MALEATE\HYDROCHLOROTHIAZIDE
     Dosage: 0.5DF UNKNOWN
     Route: 048
     Dates: start: 20181220, end: 20190222
  9. SERTRALINE [Suspect]
     Active Substance: SERTRALINE HYDROCHLORIDE
     Dosage: 100.0MG UNKNOWN
     Route: 048
     Dates: start: 20190111, end: 20190207
  10. ELIQUIS [Concomitant]
     Active Substance: APIXABAN
     Route: 048
     Dates: end: 20190214
  11. SEROQUEL [Suspect]
     Active Substance: QUETIAPINE FUMARATE
     Dosage: 100-400 MG
     Route: 048
     Dates: start: 20190111, end: 20190216
  12. SEROQUEL XR [Suspect]
     Active Substance: QUETIAPINE FUMARATE
     Dosage: 400 MG
     Route: 048
     Dates: start: 20190218
  13. LAMICTAL [Suspect]
     Active Substance: LAMOTRIGINE
     Dosage: 25-150 MG
     Route: 065
     Dates: start: 20190109, end: 20190211
  14. TEMESTA [Concomitant]
     Dosage: 5.0MG UNKNOWN
     Dates: start: 20190213, end: 20190527

REACTIONS (1)
  - Acute kidney injury [Recovered/Resolved]

NARRATIVE: CASE EVENT DATE: 20190213
